FAERS Safety Report 5219729-0 (Version None)
Quarter: 2007Q1

REPORT INFORMATION
  Report Type: 
  Country: None (occurrence: None)
  Receive Date: 20070125
  Receipt Date: 20070118
  Transmission Date: 20070707
  Serious: Yes (Other)
  Sender: FDA-Public Use
  Company Number: US-PFIZER INC-2006150060

PATIENT
  Age: 52 Year
  Sex: Male
  Weight: 83.9 kg

DRUGS (3)
  1. VIAGRA [Suspect]
     Indication: ERECTILE DYSFUNCTION
     Dates: start: 20060501, end: 20061128
  2. PENTOXIFYLLINE [Concomitant]
  3. ALPHAGAN [Concomitant]
     Route: 047

REACTIONS (1)
  - OPTIC ISCHAEMIC NEUROPATHY [None]
